FAERS Safety Report 19075261 (Version 2)
Quarter: 2021Q2

REPORT INFORMATION
  Report Type: Spontaneous
  Country: CA (occurrence: CA)
  Receive Date: 20210330
  Receipt Date: 20210623
  Transmission Date: 20210717
  Serious: Yes (Other)
  Sender: FDA-Public Use
  Company Number: CA-TEVA-2021-CA-1895757

PATIENT
  Age: 10 Year
  Sex: Female

DRUGS (6)
  1. CALCIUM [Concomitant]
     Active Substance: CALCIUM
     Indication: OSTEOPOROSIS PROPHYLAXIS
  2. VITAMIN?D [Concomitant]
     Active Substance: VITAMIN D NOS
     Indication: OSTEOPOROSIS PROPHYLAXIS
  3. CALCIUM [Concomitant]
     Active Substance: CALCIUM
     Indication: MINERAL SUPPLEMENTATION
     Route: 065
  4. PREDNISONE. [Suspect]
     Active Substance: PREDNISONE
     Dosage: DOSE TAPERED [DOSE NOT STATED]
     Route: 065
  5. PREDNISONE. [Suspect]
     Active Substance: PREDNISONE
     Indication: DERMATOMYOSITIS
     Dosage: 2 MG/KG DAILY;
     Route: 065
  6. VITAMIN?D [Concomitant]
     Active Substance: VITAMIN D NOS
     Indication: VITAMIN SUPPLEMENTATION
     Route: 065

REACTIONS (3)
  - Tibia fracture [Recovering/Resolving]
  - Stress fracture [Recovering/Resolving]
  - Fibula fracture [Recovering/Resolving]
